FAERS Safety Report 4677561-0 (Version None)
Quarter: 2005Q2

REPORT INFORMATION
  Report Type: 
  Country: None (occurrence: None)
  Receive Date: 20050526
  Receipt Date: 20050526
  Transmission Date: 20051028
  Serious: Yes (Hospitalization)
  Sender: FDA-Public Use
  Company Number: None

PATIENT
  Age: 55 Year
  Sex: Male
  Weight: 66.6788 kg

DRUGS (8)
  1. TEMAZEPAM [Suspect]
     Indication: INSOMNIA
     Dosage: 30 MG QHS
  2. TEMAZEPAM [Suspect]
     Indication: POST-TRAUMATIC STRESS DISORDER
     Dosage: 30 MG QHS
  3. DIAZEPAM [Suspect]
     Indication: POST-TRAUMATIC STRESS DISORDER
     Dosage: 10 MG TID
  4. FELODIPINE [Concomitant]
  5. HYDROCHLOROTHIAZIDE [Concomitant]
  6. LABETALOL HCL [Concomitant]
  7. MIRTAZAPINE [Concomitant]
  8. NAPROXEN [Concomitant]

REACTIONS (1)
  - MENTAL STATUS CHANGES [None]
